FAERS Safety Report 10224220 (Version 2)
Quarter: 2014Q2

REPORT INFORMATION
  Report Type: Spontaneous
  Country: US (occurrence: US)
  Receive Date: 20140609
  Receipt Date: 20140609
  Transmission Date: 20141212
  Serious: Yes (Other)
  Sender: FDA-Public Use
  Company Number: US-PFIZER INC-2014128248

PATIENT
  Age: 70 Year
  Sex: Female
  Weight: 112.93 kg

DRUGS (26)
  1. LYRICA [Suspect]
     Dosage: 150 MG, 2X/DAY
     Route: 048
     Dates: start: 20140312
  2. CELEBREX [Suspect]
     Dosage: 200 MG, 1X/DAY
  3. CELEBREX [Suspect]
     Dosage: 200 MG, AS NEEDED (EVERY DAY AS NEEDED)
     Route: 048
     Dates: start: 20140312
  4. MELATONIN [Concomitant]
     Dosage: 10 MG, 1X/DAY (H.S)
  5. MECLIZINE HYDROCHLORIDE [Concomitant]
     Indication: VERTIGO
     Dosage: 25 MG, AS NEEDED (PRN)
  6. MECLIZINE HYDROCHLORIDE [Concomitant]
     Indication: NAUSEA
  7. NEXIUM [Concomitant]
     Dosage: 40 MG, DAILY
     Route: 048
     Dates: start: 20140312
  8. LAMICTAL [Concomitant]
     Dosage: 50 MG, 2X/DAY
  9. ROBAXIN [Concomitant]
     Dosage: 750 MG, UNK
  10. TIZANIDINE [Concomitant]
     Dosage: 4 MG, UNK
  11. TIZANIDINE [Concomitant]
     Dosage: UNK
  12. ECOTRIN [Concomitant]
     Dosage: UNK
  13. LISINOPRIL [Concomitant]
     Dosage: 20 MG, DAILY
     Dates: start: 20130927
  14. HYDROCHLOROTHIAZIDE [Concomitant]
     Dosage: 25 MG, 1X/DAY
  15. NORVASC [Concomitant]
     Dosage: 10 MG, DAILY
     Dates: start: 20130111
  16. DESYRAL [Concomitant]
     Dosage: 1/2 TABLET (75MG) EVERY DAY AT BEDTIME
     Route: 048
     Dates: start: 20130219
  17. SINGULAIR [Concomitant]
     Dosage: 10 MG, 1X/DAY
     Dates: start: 20130213
  18. FLONASE [Concomitant]
     Dosage: 1 SPRAY BID
     Route: 045
  19. PROVENTIL HFA ^KEY PHARMACEUTICAL^ [Concomitant]
     Dosage: 2 PUFFS Q 4-6 HRS. PRN
     Route: 045
     Dates: start: 20130213
  20. LASIX [Concomitant]
     Dosage: 40 MG DAILY PRN
  21. VITAMIN D [Concomitant]
     Dosage: 2000 IU, DAILY
  22. CALCIUM CITRATE/COLECALCIFEROL [Concomitant]
     Dosage: UNK
  23. SYMBICORT [Concomitant]
     Dosage: 160 MCG-4.5 MCG, 2 PUFF 2X/DAY
     Route: 045
     Dates: start: 20130220
  24. LEVAQUIN [Concomitant]
     Dosage: 750 MG, 1X/DAY
     Route: 048
     Dates: start: 20130213
  25. ALBUTEROL SULFATE [Concomitant]
     Dosage: 1.25 MG/3 ML
     Route: 045
     Dates: start: 20121130
  26. MEDROL [Concomitant]
     Dosage: 4 MG, UNK
     Dates: start: 20121130

REACTIONS (7)
  - Convulsion [Unknown]
  - Hypertension [Unknown]
  - Thyroid function test abnormal [Unknown]
  - Gastrooesophageal reflux disease [Unknown]
  - Osteoarthritis [Unknown]
  - Pain [Unknown]
  - Headache [Unknown]
